FAERS Safety Report 24602365 (Version 1)
Quarter: 2024Q4

REPORT INFORMATION
  Report Type: Spontaneous
  Country: IT (occurrence: IT)
  Receive Date: 20241111
  Receipt Date: 20241111
  Transmission Date: 20250114
  Serious: Yes (Hospitalization, Other)
  Sender: BAXTER
  Company Number: IT-ROCHE-3152349

PATIENT
  Age: 77 Year
  Sex: Female
  Weight: 87 kg

DRUGS (49)
  1. CYCLOPHOSPHAMIDE [Suspect]
     Active Substance: CYCLOPHOSPHAMIDE
     Indication: Diffuse large B-cell lymphoma
     Dosage: 750 MG/M2, EVERY 3 WEEKS, ON31-AUG-2022 3:30 AM SHE RECEIVED MOST RECENT DOSE 750 MG/M2 OF STUDY DRU
     Route: 042
     Dates: start: 20220629
  2. CYCLOPHOSPHAMIDE [Suspect]
     Active Substance: CYCLOPHOSPHAMIDE
     Dosage: UNK
     Route: 042
  3. DOXORUBICIN [Suspect]
     Active Substance: DOXORUBICIN
     Indication: Diffuse large B-cell lymphoma
     Dosage: 50 MG/M2, EVERY 3 WEEK, ON 31-AUG-2022 4:35 PM, SHE RECEIVED MOST RECENT DOSE 50 MG/M2 OF STUDY DRUG
     Route: 042
     Dates: start: 20220629
  4. RITUXIMAB [Suspect]
     Active Substance: RITUXIMAB
     Indication: Diffuse large B-cell lymphoma
     Dosage: 375 MG/M2, EVERY 3 WEEKS, ON 20/JUL/2022, SHE RECEIVED MOST RECENT DOSE 375 MGM2 OF STUDY DRUG RITUX
     Route: 041
     Dates: start: 20220629
  5. METHYLPREDNISOLONE [Suspect]
     Active Substance: METHYLPREDNISOLONE
     Indication: Diffuse large B-cell lymphoma
     Dosage: 80 MG, ON 31-AUG-2022 10:40 AM SHE RECEIVED MOST RECENT DOSE 80 MG OF STUDY DRUG METHYPREDNISOLONE P
     Route: 048
     Dates: start: 20220629
  6. POLATUZUMAB VEDOTIN [Suspect]
     Active Substance: POLATUZUMAB VEDOTIN
     Indication: Diffuse large B-cell lymphoma
     Dosage: 160 MG, AS NECESSARY, ON 20/JUL/2022, SHE RECEIVED MOST RECENT DOSE 138.6 MG OF STUDY DRUG POLATUZUM
     Route: 042
     Dates: start: 20220629
  7. GLOFITAMAB [Suspect]
     Active Substance: GLOFITAMAB
     Indication: Diffuse large B-cell lymphoma
     Dosage: 2.5 MG, EVERY 3 WEEKS, DOSE OF STUDY DRUG FIRST ADMINISTERED 2.5 MG DOSE LAST STUDY DRUG ADMIN PRIOR
     Route: 042
     Dates: start: 20220727
  8. PREDNISONE [Suspect]
     Active Substance: PREDNISONE
     Indication: Diffuse large B-cell lymphoma
     Dosage: 100 MG, ON 04/SEP/2022, SHE RECEIVED MOST RECENT DOSE 100 MG OF STUDY DRUG PREDNISONE PRIOR TO AE. 0
     Route: 048
     Dates: start: 20220630
  9. FASTURTEC [Concomitant]
     Active Substance: RASBURICASE
     Dosage: 7.5 MG
     Route: 065
     Dates: start: 20220629, end: 20220704
  10. FASTURTEC [Concomitant]
     Active Substance: RASBURICASE
     Dosage: 7.5 MG
     Route: 065
     Dates: start: 20220721, end: 20220721
  11. PALONOSETRON [Concomitant]
     Active Substance: PALONOSETRON
     Dosage: 0.5 MG
     Route: 065
     Dates: start: 20220629, end: 20220629
  12. PALONOSETRON [Concomitant]
     Active Substance: PALONOSETRON
     Dosage: 0.5 MG
     Route: 065
     Dates: start: 20220720, end: 20220720
  13. PALONOSETRON [Concomitant]
     Active Substance: PALONOSETRON
     Dosage: UNK
     Route: 065
     Dates: start: 20220810, end: 20220810
  14. PALONOSETRON [Concomitant]
     Active Substance: PALONOSETRON
     Dosage: UNK
     Route: 065
     Dates: start: 20220831, end: 20220831
  15. MYCOSTATIN [Concomitant]
     Active Substance: NYSTATIN
     Dosage: UNK
     Route: 048
     Dates: start: 20220705
  16. ACETAMINOPHEN [Concomitant]
     Active Substance: ACETAMINOPHEN
     Dosage: 1000 MG
     Route: 042
     Dates: start: 20220629, end: 20220629
  17. ACETAMINOPHEN [Concomitant]
     Active Substance: ACETAMINOPHEN
     Dosage: 1000 MG
     Route: 042
     Dates: start: 20220720, end: 20220720
  18. ACETAMINOPHEN [Concomitant]
     Active Substance: ACETAMINOPHEN
     Dosage: 1000 MG
     Route: 042
     Dates: start: 20220817, end: 20220817
  19. ACETAMINOPHEN [Concomitant]
     Active Substance: ACETAMINOPHEN
     Dosage: 1000 MG
     Route: 042
     Dates: start: 20220831, end: 20220831
  20. LEVOFLOXACIN [Concomitant]
     Active Substance: LEVOFLOXACIN
     Indication: Neutropenia
     Dosage: UNK
     Route: 065
     Dates: start: 20220730, end: 20220802
  21. ENOXAPARIN SODIUM [Concomitant]
     Active Substance: ENOXAPARIN SODIUM
     Dosage: 6000 IU
     Route: 058
     Dates: start: 20220701, end: 20220704
  22. ENOXAPARIN SODIUM [Concomitant]
     Active Substance: ENOXAPARIN SODIUM
     Dosage: 6000 IU
     Route: 058
     Dates: start: 20220719, end: 20220721
  23. DEXAMETHASONE [Concomitant]
     Active Substance: DEXAMETHASONE
     Dosage: 20 MG
     Route: 065
     Dates: start: 20220727, end: 20220727
  24. DEXAMETHASONE [Concomitant]
     Active Substance: DEXAMETHASONE
     Dosage: 5 MG
     Route: 065
     Dates: start: 20220817, end: 20220817
  25. ENOXAPARIN SODIUM [Concomitant]
     Active Substance: ENOXAPARIN SODIUM
     Dosage: 4000 IU
     Route: 058
     Dates: start: 20220705, end: 20220718
  26. ENOXAPARIN SODIUM [Concomitant]
     Active Substance: ENOXAPARIN SODIUM
     Dosage: 4000 IU
     Route: 058
     Dates: start: 20220722, end: 20220819
  27. PANTOPRAZOLE [Concomitant]
     Active Substance: PANTOPRAZOLE
     Indication: Prophylaxis
     Dosage: 40 MG, EVERY 0.5 DAY
     Route: 042
     Dates: start: 20220623, end: 20220705
  28. PANTOPRAZOLE [Concomitant]
     Active Substance: PANTOPRAZOLE
     Dosage: 40 MG
     Route: 042
     Dates: start: 20220629, end: 20220629
  29. PANTOPRAZOLE [Concomitant]
     Active Substance: PANTOPRAZOLE
     Dosage: 40 MG
     Route: 065
     Dates: start: 20220705, end: 20220816
  30. PANTOPRAZOLE [Concomitant]
     Active Substance: PANTOPRAZOLE
     Dosage: 40 MG
     Route: 042
     Dates: start: 20220720, end: 20220720
  31. PANTOPRAZOLE [Concomitant]
     Active Substance: PANTOPRAZOLE
     Dosage: 40 MG
     Route: 042
     Dates: start: 20220727, end: 20220727
  32. PANTOPRAZOLE [Concomitant]
     Active Substance: PANTOPRAZOLE
     Dosage: 40 MG
     Route: 042
     Dates: start: 20220810, end: 20220810
  33. PANTOPRAZOLE [Concomitant]
     Active Substance: PANTOPRAZOLE
     Dosage: 40 MG
     Route: 042
     Dates: start: 20220817, end: 20220817
  34. PANTOPRAZOLE [Concomitant]
     Active Substance: PANTOPRAZOLE
     Dosage: 40 MG
     Route: 042
     Dates: start: 20220817, end: 20220825
  35. PANTOPRAZOLE [Concomitant]
     Active Substance: PANTOPRAZOLE
     Dosage: 40 MG
     Route: 065
     Dates: start: 20220826
  36. PANTOPRAZOLE [Concomitant]
     Active Substance: PANTOPRAZOLE
     Dosage: 40 MG
     Route: 042
     Dates: start: 20220831, end: 20220831
  37. CHLORPHENIRAMINE MALEATE [Concomitant]
     Active Substance: CHLORPHENIRAMINE MALEATE
     Dosage: 10 MG
     Route: 042
     Dates: start: 20220629, end: 20220629
  38. CHLORPHENIRAMINE MALEATE [Concomitant]
     Active Substance: CHLORPHENIRAMINE MALEATE
     Dosage: 5 MG
     Route: 042
     Dates: start: 20220720, end: 20220720
  39. CHLORPHENIRAMINE MALEATE [Concomitant]
     Active Substance: CHLORPHENIRAMINE MALEATE
     Dosage: UNK
     Route: 042
     Dates: start: 20220727, end: 20220727
  40. CHLORPHENIRAMINE MALEATE [Concomitant]
     Active Substance: CHLORPHENIRAMINE MALEATE
     Dosage: 5 MG
     Route: 042
     Dates: start: 20220810, end: 20220810
  41. CHLORPHENIRAMINE MALEATE [Concomitant]
     Active Substance: CHLORPHENIRAMINE MALEATE
     Dosage: 5 MG
     Route: 042
     Dates: start: 20220817, end: 20220817
  42. CHLORPHENIRAMINE MALEATE [Concomitant]
     Active Substance: CHLORPHENIRAMINE MALEATE
     Dosage: 5 MG
     Route: 042
     Dates: start: 20220831, end: 20220831
  43. ACYCLOVIR [Concomitant]
     Active Substance: ACYCLOVIR
     Dosage: 400 MG
     Route: 065
     Dates: start: 20220706
  44. CEFIXIME [Concomitant]
     Active Substance: CEFIXIME
     Dosage: 400 MG
     Route: 065
     Dates: start: 20220705, end: 20220709
  45. CEFTRIAXONE [Concomitant]
     Active Substance: CEFTRIAXONE
     Dosage: 2 G
     Route: 065
     Dates: start: 20220817, end: 20220817
  46. FONDAPARINUX [Concomitant]
     Active Substance: FONDAPARINUX
     Dosage: 2.5 MG, EVERY 0.5 DAY
     Route: 058
     Dates: start: 20220826, end: 20220909
  47. TARGOSID [Concomitant]
     Active Substance: TEICOPLANIN
     Indication: Pyrexia
     Dosage: UNK
     Route: 065
     Dates: start: 20220910, end: 20220912
  48. PIPERACILLIN SODIUM\TAZOBACTAM SODIUM [Concomitant]
     Active Substance: PIPERACILLIN SODIUM\TAZOBACTAM SODIUM
     Dosage: UNK
     Route: 065
     Dates: start: 20220907, end: 20220909
  49. PIPERACILLIN SODIUM\TAZOBACTAM SODIUM [Concomitant]
     Active Substance: PIPERACILLIN SODIUM\TAZOBACTAM SODIUM
     Dosage: UNK
     Route: 065
     Dates: start: 20220912, end: 20220918

REACTIONS (3)
  - Neutropenia [Recovered/Resolved]
  - Febrile neutropenia [Recovered/Resolved]
  - Decreased appetite [Not Recovered/Not Resolved]

NARRATIVE: CASE EVENT DATE: 20220729
